FAERS Safety Report 17927851 (Version 1)
Quarter: 2020Q2

REPORT INFORMATION
  Report Type: Spontaneous
  Country: US (occurrence: US)
  Receive Date: 20200622
  Receipt Date: 20200622
  Transmission Date: 20200714
  Serious: No
  Sender: FDA-Public Use
  Company Number: None

PATIENT
  Age: 66 Year
  Sex: Male
  Weight: 76.66 kg

DRUGS (2)
  1. DULOXETINE (DULOXETINE HCL 30MG CAP, EC) [Suspect]
     Active Substance: DULOXETINE HYDROCHLORIDE
     Indication: ANXIETY
     Route: 048
     Dates: start: 20190912, end: 20200131
  2. DULOXETINE (DULOXETINE HCL 30MG CAP, EC) [Suspect]
     Active Substance: DULOXETINE HYDROCHLORIDE
     Indication: PAIN
     Route: 048
     Dates: start: 20190912, end: 20200131

REACTIONS (9)
  - Diarrhoea [None]
  - Hypotension [None]
  - Malabsorption [None]
  - Weight decreased [None]
  - Dizziness [None]
  - Nausea [None]
  - Vomiting [None]
  - Asthenia [None]
  - Pancreatitis chronic [None]

NARRATIVE: CASE EVENT DATE: 20200114
